FAERS Safety Report 11202604 (Version 1)
Quarter: 2015Q2

REPORT INFORMATION
  Report Type: Spontaneous
  Country: SE (occurrence: SE)
  Receive Date: 20150619
  Receipt Date: 20150619
  Transmission Date: 20150821
  Serious: Yes (Other)
  Sender: FDA-Public Use
  Company Number: SE-PFIZER INC-2015200279

PATIENT
  Age: 82 Year
  Sex: Male

DRUGS (12)
  1. CLAFORAN [Suspect]
     Active Substance: CEFOTAXIME SODIUM
     Indication: INFECTION
     Dosage: 1 G, 3X/DAY
     Dates: start: 20150408, end: 20150411
  2. BRILIQUE [Concomitant]
     Active Substance: TICAGRELOR
  3. FINASTERIDE. [Concomitant]
     Active Substance: FINASTERIDE
  4. ENALAPRIL [Concomitant]
     Active Substance: ENALAPRIL
  5. PANTOLOC [Concomitant]
     Active Substance: PANTOPRAZOLE SODIUM
  6. PREDNISOLONE. [Concomitant]
     Active Substance: PREDNISOLONE
  7. ATORVASTATIN CALCIUM. [Suspect]
     Active Substance: ATORVASTATIN CALCIUM
     Indication: HYPERLIPIDAEMIA
     Dosage: 80 MG, 1X/DAY
     Dates: start: 20150202, end: 20150410
  8. TROMBYL [Concomitant]
     Active Substance: ASPIRIN
  9. DALACIN [Suspect]
     Active Substance: CLINDAMYCIN\CLINDAMYCIN PHOSPHATE
     Indication: INFECTION
     Dosage: 300 MG, 3X/DAY
     Dates: start: 20150402, end: 20150408
  10. GLYCERYL TRINITRATE [Concomitant]
     Active Substance: NITROGLYCERIN
  11. METOPROLOL [Concomitant]
     Active Substance: METOPROLOL
  12. SOBRIL [Concomitant]
     Active Substance: OXAZEPAM

REACTIONS (1)
  - Hepatic failure [Not Recovered/Not Resolved]

NARRATIVE: CASE EVENT DATE: 20150408
